FAERS Safety Report 7513446-X (Version None)
Quarter: 2011Q2

REPORT INFORMATION
  Report Type: 
  Country: None (occurrence: None)
  Receive Date: 20110531
  Receipt Date: 20110517
  Transmission Date: 20111010
  Serious: Yes (Other)
  Sender: FDA-Public Use
  Company Number: AT-UCBSA-033221

PATIENT
  Age: 24 Month
  Sex: Female
  Weight: 11 kg

DRUGS (1)
  1. VIMPAT [Suspect]
     Indication: INFANTILE SPASMS

REACTIONS (1)
  - CONVULSION [None]
